FAERS Safety Report 14281042 (Version 10)
Quarter: 2018Q2

REPORT INFORMATION
  Report Type: Spontaneous
  Country: US (occurrence: US)
  Receive Date: 20171213
  Receipt Date: 20180514
  Transmission Date: 20180711
  Serious: Yes (Hospitalization, Other)
  Sender: FDA-Public Use
  Company Number: US-GLAXOSMITHKLINE-US2017GSK191694

PATIENT
  Age: 61 Year
  Sex: Male

DRUGS (11)
  1. FLOLAN [Suspect]
     Active Substance: EPOPROSTENOL SODIUM
     Indication: PULMONARY HYPERTENSION
     Dosage: 21 DF, CO
     Route: 042
     Dates: start: 20171206
  2. FLOLAN [Suspect]
     Active Substance: EPOPROSTENOL SODIUM
     Dosage: 40 DF, CO
     Route: 042
     Dates: start: 20171206
  3. FLOLAN [Suspect]
     Active Substance: EPOPROSTENOL SODIUM
     Dosage: UNK
  4. AMLODIPINE [Concomitant]
     Active Substance: AMLODIPINE BESYLATE
  5. FLOLAN [Suspect]
     Active Substance: EPOPROSTENOL SODIUM
     Indication: PULMONARY HYPERTENSION
     Dosage: UNK
  6. FLOLAN [Suspect]
     Active Substance: EPOPROSTENOL SODIUM
     Dosage: UNK
  7. REVATIO [Concomitant]
     Active Substance: SILDENAFIL CITRATE
  8. ADEMPAS [Concomitant]
     Active Substance: RIOCIGUAT
  9. FLOLAN [Suspect]
     Active Substance: EPOPROSTENOL SODIUM
     Indication: PULMONARY HYPERTENSION
     Dosage: UNK
     Dates: start: 20171206
  10. FLOLAN [Suspect]
     Active Substance: EPOPROSTENOL SODIUM
     Indication: PULMONARY HYPERTENSION
     Dosage: 27 DF, CO
     Route: 042
     Dates: start: 20171206
  11. FLOLAN [Suspect]
     Active Substance: EPOPROSTENOL SODIUM
     Dosage: 40 DF, CO
     Route: 042

REACTIONS (20)
  - Back pain [Unknown]
  - Alopecia [Unknown]
  - Myalgia [Unknown]
  - Diarrhoea [Unknown]
  - Condition aggravated [Unknown]
  - Migraine [Unknown]
  - Complication associated with device [Unknown]
  - Crepitations [Unknown]
  - Pain in jaw [Unknown]
  - Weight increased [Unknown]
  - Flushing [Unknown]
  - Pallor [Recovered/Resolved]
  - Arthralgia [Unknown]
  - Headache [Unknown]
  - Abdominal distension [Unknown]
  - Dyspnoea [Recovered/Resolved]
  - Pain [Unknown]
  - Nausea [Unknown]
  - Insomnia [Unknown]
  - Central venous catheterisation [Unknown]

NARRATIVE: CASE EVENT DATE: 201712
